FAERS Safety Report 6611679-8 (Version None)
Quarter: 2010Q1

REPORT INFORMATION
  Report Type: 
  Country: None (occurrence: None)
  Receive Date: 20100226
  Receipt Date: 20100226
  Transmission Date: 20100710
  Serious: No
  Sender: FDA-Public Use
  Company Number: None

PATIENT
  Sex: Male
  Weight: 108.8633 kg

DRUGS (2)
  1. BYETTA [Suspect]
     Indication: WEIGHT CONTROL
     Dosage: ONE INJECTION SHOT TWICE DAILY SQ
     Route: 058
     Dates: start: 20090315, end: 20090608
  2. BYETTA [Suspect]
     Indication: DIABETES MELLITUS
     Dosage: ONE INJECTION SHOT TWICE DAILY SQ
     Route: 058
     Dates: start: 20090608, end: 20090626

REACTIONS (7)
  - ABDOMINAL PAIN UPPER [None]
  - ANORECTAL DISORDER [None]
  - DIARRHOEA [None]
  - GASTROINTESTINAL DISORDER [None]
  - GASTROINTESTINAL INFECTION [None]
  - PROCTALGIA [None]
  - SWELLING [None]
